FAERS Safety Report 9550187 (Version 1)
Quarter: 2013Q3

REPORT INFORMATION
  Report Type: Spontaneous
  Country: US (occurrence: US)
  Receive Date: 20130924
  Receipt Date: 20130924
  Transmission Date: 20140515
  Serious: No
  Sender: FDA-Public Use
  Company Number: US-009507513-1309USA007777

PATIENT
  Sex: Female

DRUGS (1)
  1. ZOCOR [Suspect]
     Dosage: DURATION: 1 1/2 TO 2 YEARS
     Route: 048

REACTIONS (2)
  - Feeling abnormal [Recovered/Resolved]
  - Adverse drug reaction [Unknown]
